FAERS Safety Report 9174749 (Version 1)
Quarter: 2013Q1

REPORT INFORMATION
  Report Type: Spontaneous
  Country: GB (occurrence: GB)
  Receive Date: 20130320
  Receipt Date: 20130320
  Transmission Date: 20140127
  Serious: Yes (Hospitalization, Disabling)
  Sender: FDA-Public Use
  Company Number: GB-ASTRAZENECA-2013SE16341

PATIENT
  Age: 45 Year
  Sex: Female
  Weight: 113 kg

DRUGS (24)
  1. BRILIQUE [Suspect]
     Indication: ACUTE MYOCARDIAL INFARCTION
     Route: 048
     Dates: start: 20130214, end: 20130225
  2. AMLODIPINE [Concomitant]
     Route: 065
  3. ASPIRIN [Concomitant]
     Route: 065
  4. ATORVASTATIN [Concomitant]
     Route: 065
  5. BETAHISTINE [Concomitant]
     Route: 065
  6. BISOPROLOL [Concomitant]
     Route: 065
  7. CETIRIZINE [Concomitant]
     Route: 065
  8. CO-PHENOTROPE [Concomitant]
     Route: 065
  9. DASATINIB [Concomitant]
     Route: 065
  10. DIAZEPAM [Concomitant]
     Route: 065
  11. DOMPERIDONE [Concomitant]
     Route: 065
  12. GTN [Concomitant]
     Route: 065
  13. HUMULIN I [Concomitant]
     Route: 065
  14. HYOSCINE BUTYLBROMIDE [Concomitant]
     Route: 065
  15. LANSOPRAZOLE [Concomitant]
     Route: 065
  16. LISINOPRIL [Concomitant]
     Route: 065
  17. NORETHISTERONE [Concomitant]
     Route: 065
  18. NOVORAPID [Concomitant]
     Route: 065
  19. PROCHLORPERAZINE [Concomitant]
     Route: 065
  20. RANITIDINE [Concomitant]
     Route: 065
  21. SIMETICONE [Concomitant]
     Route: 065
  22. VENLAFAXINE [Concomitant]
     Route: 065
  23. VITAMIN B12 [Concomitant]
     Route: 065
  24. ZOPICLONE [Concomitant]
     Route: 065

REACTIONS (5)
  - Chest discomfort [Unknown]
  - Fatigue [Unknown]
  - Palpitations [Unknown]
  - Dyspepsia [Unknown]
  - Dyspnoea [Unknown]
